FAERS Safety Report 12085578 (Version 1)
Quarter: 2016Q1

REPORT INFORMATION
  Report Type: Spontaneous
  Country: PT (occurrence: PT)
  Receive Date: 20160217
  Receipt Date: 20160217
  Transmission Date: 20160526
  Serious: Yes (Other)
  Sender: FDA-Public Use
  Company Number: PT-GLAXOSMITHKLINE-PT2016019175

PATIENT
  Age: 10 Month
  Sex: Female
  Weight: 8 kg

DRUGS (2)
  1. ATROVENT PA [Concomitant]
     Indication: BRONCHIOLITIS
     Route: 055
  2. VENTILAN [Suspect]
     Active Substance: ALBUTEROL SULFATE
     Indication: AIRWAY COMPLICATION OF ANAESTHESIA
     Route: 055
     Dates: start: 20151128

REACTIONS (4)
  - Peripheral coldness [Recovered/Resolved]
  - Lip discolouration [Recovered/Resolved]
  - Off label use [Unknown]
  - Drug administered to patient of inappropriate age [Unknown]

NARRATIVE: CASE EVENT DATE: 20151128
